FAERS Safety Report 6639034-5 (Version None)
Quarter: 2010Q1

REPORT INFORMATION
  Report Type: 
  Country: None (occurrence: None)
  Receive Date: 20100317
  Receipt Date: 20100308
  Transmission Date: 20100710
  Serious: Yes (Hospitalization)
  Sender: FDA-Public Use
  Company Number: FR-ASTRAZENECA-2010SE10373

PATIENT
  Age: 19 Year
  Sex: Female

DRUGS (6)
  1. NEXIUM [Suspect]
     Route: 048
  2. METHOTREXATE [Interacting]
     Indication: AESTHESIONEUROBLASTOMA
     Route: 042
  3. IMOVANE [Concomitant]
  4. FUMAFER [Concomitant]
  5. ETOPOSIDE [Concomitant]
     Route: 042
  6. CISPLATIN [Concomitant]
     Route: 042

REACTIONS (4)
  - DRUG INTERACTION [None]
  - DRUG LEVEL INCREASED [None]
  - RENAL FAILURE ACUTE [None]
  - TUMOUR LYSIS SYNDROME [None]
